FAERS Safety Report 8564954-4 (Version None)
Quarter: 2012Q3

REPORT INFORMATION
  Report Type: 
  Country: None (occurrence: None)
  Receive Date: 20120803
  Receipt Date: 20120203
  Transmission Date: 20120928
  Serious: Yes (Other)
  Sender: FDA-Public Use
  Company Number: PT-ROCHE-1036590

PATIENT
  Sex: Female

DRUGS (1)
  1. ACTEMRA [Suspect]
     Indication: RHEUMATOID ARTHRITIS
     Route: 042
     Dates: start: 20110317, end: 20111123

REACTIONS (7)
  - OEDEMA PERIPHERAL [None]
  - ANGIOEDEMA [None]
  - LIP OEDEMA [None]
  - PRURITUS GENERALISED [None]
  - RASH MACULO-PAPULAR [None]
  - ERYTHEMA [None]
  - PRURITUS [None]
